FAERS Safety Report 4855991-1 (Version None)
Quarter: 2005Q4

REPORT INFORMATION
  Report Type: 
  Country: None (occurrence: None)
  Receive Date: 20051214
  Receipt Date: 20051128
  Transmission Date: 20060501
  Serious: Yes (Hospitalization)
  Sender: FDA-Public Use
  Company Number: 2002001326-FJ

PATIENT
  Age: 22 Year
  Sex: Female

DRUGS (14)
  1. PROGRAF [Suspect]
     Indication: RENAL TRANSPLANT
     Dosage: SEE IMAGE
     Dates: start: 20011022, end: 20011023
  2. PROGRAF [Suspect]
     Indication: RENAL TRANSPLANT
     Dosage: SEE IMAGE
     Dates: start: 20011024, end: 20011025
  3. PROGRAF [Suspect]
     Indication: RENAL TRANSPLANT
     Dosage: SEE IMAGE
     Dates: start: 20011026, end: 20011029
  4. PROGRAF [Suspect]
     Indication: RENAL TRANSPLANT
     Dosage: SEE IMAGE
     Dates: start: 20020117, end: 20020117
  5. PROGRAF [Suspect]
     Indication: RENAL TRANSPLANT
     Dosage: SEE IMAGE
     Dates: start: 20011030
  6. METHYLPREDNISOLONE [Suspect]
     Dosage: SEE IMAGE
     Dates: start: 20011024, end: 20011025
  7. METHYLPREDNISOLONE [Suspect]
     Dosage: SEE IMAGE
     Dates: start: 20011026, end: 20011027
  8. METHYLPREDNISOLONE [Suspect]
     Dosage: SEE IMAGE
     Dates: start: 20011028
  9. METHYLPREDNISOLONE [Suspect]
     Dosage: SEE IMAGE
     Dates: start: 20011031
  10. MYCOPHENOLATE MOFETIL (MYCOPHENOLATE MOFETIL) [Suspect]
     Dosage: 2000 MG, /D, ORAL
     Route: 048
     Dates: start: 20011101, end: 20020117
  11. AZATHIOPRINE [Concomitant]
  12. IMMUNE GLOBULIN INTRAVENOUS (HUMAN) [Concomitant]
  13. FAMOTIDINE [Concomitant]
  14. CEFOTIAM HEXETIL HYDROCHLORI [Concomitant]

REACTIONS (2)
  - ANAEMIA [None]
  - CYTOMEGALOVIRUS ENTEROCOLITIS [None]
